FAERS Safety Report 4628142-6 (Version None)
Quarter: 2005Q2

REPORT INFORMATION
  Report Type: 
  Country: None (occurrence: None)
  Receive Date: 20050406
  Receipt Date: 20050328
  Transmission Date: 20051028
  Serious: Yes (Hospitalization)
  Sender: FDA-Public Use
  Company Number: US-JNJFOC-20050204944

PATIENT
  Sex: Female

DRUGS (2)
  1. IBUPROFEN [Suspect]
  2. IBUPROFEN [Suspect]
     Indication: ARTHRITIS

REACTIONS (4)
  - GASTRIC ULCER [None]
  - GASTRIC ULCER HAEMORRHAGE [None]
  - VOMITING [None]
  - WEIGHT DECREASED [None]
